FAERS Safety Report 6907788-6 (Version None)
Quarter: 2010Q3

REPORT INFORMATION
  Report Type: 
  Country: None (occurrence: None)
  Receive Date: 20100712
  Receipt Date: 20100407
  Transmission Date: 20110219
  Serious: No
  Sender: FDA-Public Use
  Company Number: US-000018

PATIENT
  Sex: Female
  Weight: 94.3482 kg

DRUGS (17)
  1. KUVAN [Suspect]
     Indication: PHENYLKETONURIA
     Dosage: 1900 MG QD ORAL), (1900 MG QD ORAL)
     Route: 048
     Dates: start: 20080601, end: 20100126
  2. KUVAN [Suspect]
     Indication: PHENYLKETONURIA
     Dosage: 1900 MG QD ORAL), (1900 MG QD ORAL)
     Route: 048
     Dates: start: 20100201
  3. DIOVAN [Concomitant]
  4. OMEGA 3 /01334101/ [Concomitant]
  5. INEXIUM /01479302/ [Concomitant]
  6. ZYRTEC [Concomitant]
  7. VIVELLE-DOT [Concomitant]
  8. SINGULAIR [Concomitant]
  9. COD LIVER OIL [Concomitant]
  10. PHENERGAN HCL [Concomitant]
  11. CALCIUM PLUS /01702801/ [Concomitant]
  12. DAILY MULTIVITAMIN [Concomitant]
  13. CINNAMON [Concomitant]
  14. PLAQUENIL /00072601/ [Concomitant]
  15. PAXIL [Concomitant]
  16. ALLERGY MEDICATION [Concomitant]
  17. UNSPECIFIED HERBAL [Concomitant]

REACTIONS (8)
  - ABDOMINAL PAIN UPPER [None]
  - DECREASED APPETITE [None]
  - DIARRHOEA [None]
  - GASTROENTERITIS VIRAL [None]
  - NAUSEA [None]
  - PAIN [None]
  - THROAT IRRITATION [None]
  - VOMITING [None]
